FAERS Safety Report 7686781-2 (Version None)
Quarter: 2011Q3

REPORT INFORMATION
  Report Type: 
  Country: None (occurrence: None)
  Receive Date: 20110816
  Receipt Date: 20110805
  Transmission Date: 20111222
  Serious: Yes (Hospitalization)
  Sender: FDA-Public Use
  Company Number: PHHY2011IT70699

PATIENT
  Sex: Female

DRUGS (2)
  1. VENLAFAXINE [Suspect]
  2. TOPIRAMATE [Suspect]

REACTIONS (2)
  - SOPOR [None]
  - INJURY [None]
